FAERS Safety Report 8545705-6 (Version None)
Quarter: 2012Q3

REPORT INFORMATION
  Report Type: 
  Country: None (occurrence: None)
  Receive Date: 20120727
  Receipt Date: 20120723
  Transmission Date: 20120928
  Serious: No
  Sender: FDA-Public Use
  Company Number: PL-ROCHE-1047446

PATIENT
  Age: 44 Year
  Sex: Male
  Weight: 91.1 kg

DRUGS (5)
  1. ZYRTEC [Concomitant]
     Dates: start: 20120117
  2. BORIC ACID [Concomitant]
     Dates: start: 20120117
  3. VEMURAFENIB [Suspect]
     Route: 048
     Dates: start: 20120626
  4. HYDROCORTISONE [Concomitant]
     Dates: start: 20120117
  5. VEMURAFENIB [Suspect]
     Indication: MALIGNANT MELANOMA
     Dosage: DOSE REDUCED
     Route: 048
     Dates: start: 20120110

REACTIONS (1)
  - DIPLOPIA [None]
